FAERS Safety Report 7105295-1 (Version None)
Quarter: 2010Q4

REPORT INFORMATION
  Report Type: 
  Country: None (occurrence: None)
  Receive Date: 20101116
  Receipt Date: 20101103
  Transmission Date: 20110411
  Serious: Yes (Hospitalization)
  Sender: FDA-Public Use
  Company Number: US-ELI_LILLY_AND_COMPANY-US201011001417

PATIENT
  Sex: Female

DRUGS (3)
  1. FORTEO [Suspect]
     Indication: OSTEOPOROSIS
     Dosage: 20 UG, DAILY (1/D)
  2. ULTRACET [Concomitant]
     Indication: PAIN
     Dosage: UNK, OTHER
  3. PROTONIX [Concomitant]
     Dosage: 40 MG, EACH MORNING

REACTIONS (4)
  - BACK DISORDER [None]
  - BONE DENSITY DECREASED [None]
  - DIZZINESS [None]
  - MENINGITIS BACTERIAL [None]
